FAERS Safety Report 9164147 (Version 5)
Quarter: 2013Q4

REPORT INFORMATION
  Report Type: Spontaneous
  Country: US (occurrence: US)
  Receive Date: 20130315
  Receipt Date: 20131106
  Transmission Date: 20140711
  Serious: Yes (Hospitalization, Other)
  Sender: FDA-Public Use
  Company Number: US-009507513-1303USA004284

PATIENT
  Age: 36 Year
  Sex: Female
  Weight: 74.38 kg

DRUGS (6)
  1. VICTRELIS [Suspect]
     Indication: HEPATITIS C
     Dosage: 800 MG, TID
     Route: 048
     Dates: start: 20121110, end: 20130304
  2. PEGASYS [Suspect]
     Indication: HEPATITIS C
     Dosage: 180 MICROGRAM, QW
     Route: 058
     Dates: start: 20121013
  3. PEGASYS [Suspect]
     Dosage: 135 MICROGRAM, QW
     Route: 058
     Dates: end: 20130304
  4. REBETOL [Suspect]
     Indication: HEPATITIS C
     Dosage: 600/400 MG DAILY
     Route: 048
     Dates: start: 20121013
  5. REBETOL [Suspect]
     Dosage: 200MG DAILY
     Route: 048
     Dates: end: 20130304
  6. PRISTIQ [Concomitant]
     Indication: DEPRESSION
     Dosage: 50MG DAILY
     Route: 048

REACTIONS (3)
  - Neutropenia [Recovered/Resolved]
  - Leukopenia [Recovered/Resolved]
  - Anaemia [Recovering/Resolving]
